FAERS Safety Report 21332685 (Version 2)
Quarter: 2022Q3

REPORT INFORMATION
  Report Type: Spontaneous
  Country: US (occurrence: US)
  Receive Date: 20220914
  Receipt Date: 20220920
  Transmission Date: 20221027
  Serious: Yes (Hospitalization)
  Sender: FDA-Public Use
  Company Number: US-PFIZER INC-202201135268

PATIENT
  Sex: Female

DRUGS (1)
  1. NIVESTYM [Suspect]
     Active Substance: FILGRASTIM-AAFI
     Dosage: UNK

REACTIONS (3)
  - Product supply issue [Unknown]
  - Product dose omission issue [Unknown]
  - Full blood count abnormal [Unknown]
